FAERS Safety Report 9200228 (Version 4)
Quarter: 2014Q1

REPORT INFORMATION
  Report Type: Report from Study
  Country: US (occurrence: US)
  Receive Date: 20130329
  Receipt Date: 20140312
  Transmission Date: 20141002
  Serious: Yes (Death, Life-Threatening, Hospitalization)
  Sender: FDA-Public Use
  Company Number: US-PURDUE-USA-2013-0100260

PATIENT
  Age: 55 Year
  Sex: Male
  Weight: 113.38 kg

DRUGS (3)
  1. OXY CR TAB [Suspect]
     Indication: LUMBAR RADICULOPATHY
     Dosage: 60 MG, UNK
     Route: 048
     Dates: start: 20091125, end: 20130320
  2. OXYCODONE HCL IMMEDIATE RELEASE (91-490) [Suspect]
     Indication: LUMBAR RADICULOPATHY
     Dosage: 15 MG, QID
     Route: 048
     Dates: start: 20091113, end: 20130320
  3. ELAVIL /00002202/ [Suspect]

REACTIONS (12)
  - Respiratory failure [Fatal]
  - Haemorrhagic stroke [Not Recovered/Not Resolved]
  - Paralysis [Not Recovered/Not Resolved]
  - Neuropathy peripheral [Unknown]
  - Radiculitis [Unknown]
  - Muscular weakness [Unknown]
  - Pain [Unknown]
  - Hypokinesia [Unknown]
  - Muscular weakness [Unknown]
  - Chest pain [Unknown]
  - Pain in extremity [Unknown]
  - Night sweats [Unknown]
